FAERS Safety Report 8777936 (Version 1)
Quarter: 2012Q4

REPORT INFORMATION
  Report Type: 
  Country: IT (occurrence: IT)
  Receive Date: 20120912
  Receipt Date: 20120912
  Transmission Date: 20130627
  Serious: Yes (Hospitalization)
  Sender: FDA-Public Use
  Company Number: PHHY2012IT078367

PATIENT
  Age: 78 Year
  Sex: Female

DRUGS (7)
  1. ROSUVASTATIN [Suspect]
     Indication: HYPERCHOLESTEROLAEMIA
     Dosage: 1 DF, UNK
     Route: 048
     Dates: start: 20120801, end: 20120812
  2. ALLOPURINOL [Interacting]
     Indication: GOUT
     Dosage: 1 DF, UNK
     Route: 048
     Dates: start: 20120801, end: 20120812
  3. SOTALEX [Concomitant]
  4. ALMARYTM [Concomitant]
  5. COTAREG [Concomitant]
  6. SINTROM [Concomitant]
  7. LANSOX [Concomitant]

REACTIONS (5)
  - Erythema multiforme [Recovering/Resolving]
  - Vaginal inflammation [Recovering/Resolving]
  - Stomatitis [Recovering/Resolving]
  - Conjunctivitis [Recovering/Resolving]
  - Drug interaction [Unknown]
